FAERS Safety Report 10374752 (Version 1)
Quarter: 2014Q3

REPORT INFORMATION
  Report Type: Spontaneous
  Country: US (occurrence: None)
  Receive Date: 20140808
  Receipt Date: 20140808
  Transmission Date: 20150326
  Serious: Yes (Life-Threatening, Hospitalization)
  Sender: FDA-Public Use
  Company Number: None

PATIENT
  Age: 41 Year
  Sex: Female
  Weight: 75 kg

DRUGS (4)
  1. VENLAFAXINE [Suspect]
     Active Substance: VENLAFAXINE HYDROCHLORIDE
     Indication: DEPRESSION
     Dates: start: 20140709, end: 20140802
  2. KEPPRA [Concomitant]
     Active Substance: LEVETIRACETAM
  3. LINEZOLID. [Suspect]
     Active Substance: LINEZOLID
     Indication: PNEUMONIA STAPHYLOCOCCAL
     Dates: start: 20140723, end: 20140731
  4. LINEZOLID. [Suspect]
     Active Substance: LINEZOLID
     Indication: STAPHYLOCOCCAL BACTERAEMIA
     Dates: start: 20140723, end: 20140731

REACTIONS (7)
  - Brain oedema [None]
  - Subarachnoid haemorrhage [None]
  - Posterior reversible encephalopathy syndrome [None]
  - Convulsion [None]
  - Tachycardia [None]
  - Infection [None]
  - Hypertension [None]

NARRATIVE: CASE EVENT DATE: 20140731
